FAERS Safety Report 9927315 (Version 2)
Quarter: 2014Q2

REPORT INFORMATION
  Report Type: Spontaneous
  Country: JP (occurrence: JP)
  Receive Date: 20140226
  Receipt Date: 20140409
  Transmission Date: 20141212
  Serious: Yes (Death, Hospitalization)
  Sender: FDA-Public Use
  Company Number: PHHY2014JP022361

PATIENT
  Age: 65 Year
  Sex: Male

DRUGS (10)
  1. FASTIC (NATEGLINIDE) [Suspect]
     Indication: CHRONIC HEPATITIS
     Route: 048
  2. CICLOSPORIN [Suspect]
     Dosage: 150 MG, UNK
  3. CELLCEPT [Suspect]
     Dosage: 1500 MG, UNK
     Route: 048
  4. TAMSULOSIN [Suspect]
     Indication: CHRONIC HEPATITIS
     Route: 048
     Dates: start: 20091030
  5. CILOSTAZOL [Suspect]
     Indication: CHRONIC HEPATITIS
     Dates: start: 20091030
  6. RABEPRAZOLE [Suspect]
     Indication: CHRONIC HEPATITIS
     Route: 048
     Dates: end: 20091030
  7. PREDNISOLONE [Concomitant]
     Dosage: 50 MG, UNK
  8. PREDNISOLONE [Concomitant]
     Dosage: 20 MG, UNK
  9. PREDNISOLONE [Concomitant]
     Dosage: 10 MG, UNK
  10. PREDNISOLONE [Concomitant]
     Dosage: 5 MG, UNK

REACTIONS (6)
  - Drug-induced liver injury [Fatal]
  - Malaise [Fatal]
  - Oedema [Fatal]
  - Pruritus [Fatal]
  - Decreased appetite [Fatal]
  - Cytomegalovirus gastritis [Unknown]
